FAERS Safety Report 4495309-X (Version None)
Quarter: 2004Q4

REPORT INFORMATION
  Report Type: 
  Country: None (occurrence: None)
  Receive Date: 20041108
  Receipt Date: 20041006
  Transmission Date: 20050328
  Serious: No
  Sender: FDA-Public Use
  Company Number: US-GLAXOSMITHKLINE-A0528775A

PATIENT
  Age: 56 Year
  Sex: Female

DRUGS (10)
  1. AVANDAMET [Suspect]
     Dosage: 1TAB THREE TIMES PER DAY
     Route: 048
     Dates: start: 20040922
  2. LIPITOR [Concomitant]
  3. DIOVAN [Concomitant]
  4. GLUCOTROL [Concomitant]
  5. ASPIRIN [Concomitant]
  6. VITAMIN B COMPLEX CAP [Concomitant]
  7. VITAMIN C [Concomitant]
  8. VITAMIN E [Concomitant]
  9. FISH OIL [Concomitant]
  10. HCT [Concomitant]

REACTIONS (4)
  - BLOOD GLUCOSE INCREASED [None]
  - DRUG INEFFECTIVE [None]
  - INCREASED APPETITE [None]
  - NAUSEA [None]
